FAERS Safety Report 8854692 (Version 2)
Quarter: 2012Q4

REPORT INFORMATION
  Report Type: 
  Country: US (occurrence: US)
  Receive Date: 20121023
  Receipt Date: 20121227
  Transmission Date: 20130627
  Serious: Yes (Hospitalization, Other)
  Sender: FDA-Public Use
  Company Number: US-PFIZER INC-2012261765

PATIENT
  Age: 81 Year
  Sex: Female
  Weight: 77.1 kg

DRUGS (10)
  1. CADUET [Suspect]
     Indication: BLOOD PRESSURE HIGH
     Dosage: amlodipine besilate 5 mg/atorvastatin calcium 20 mg, 1x/day
     Route: 048
     Dates: start: 200412, end: 20120922
  2. CADUET [Suspect]
     Indication: HIGH CHOLESTEROL
  3. CADUET [Suspect]
     Indication: HYPERTENSION
  4. CELEBREX [Suspect]
     Indication: ARTHRITIS
     Dosage: 200 mg, 1x/day
     Route: 048
     Dates: start: 200505, end: 20120922
  5. LEVOTHROID [Concomitant]
     Dosage: UNK
  6. ZYLOPRIM [Concomitant]
     Dosage: 300 mg, 1x/day
     Dates: start: 20100318
  7. OMEPRAZOLE [Concomitant]
     Indication: ESOPHAGEAL ACID REFLUX
     Dosage: 20 mg, 1x/day
     Route: 048
     Dates: start: 20111007
  8. NADOLOL [Concomitant]
     Indication: BLOOD PRESSURE
     Dosage: 80 mg, 1x/day
     Route: 048
  9. FUROSEMIDE [Concomitant]
     Dosage: 20 mg, 1x/day
     Route: 048
  10. ATENOLOL [Concomitant]
     Indication: BLOOD PRESSURE
     Dosage: 25 mg, 1x/day
     Route: 048

REACTIONS (3)
  - Acute coronary syndrome [Recovered/Resolved]
  - Atrial fibrillation [Recovered/Resolved with Sequelae]
  - Myocardial infarction [Unknown]
